FAERS Safety Report 9136764 (Version 1)
Quarter: 2013Q1

REPORT INFORMATION
  Report Type: Spontaneous
  Country: US (occurrence: US)
  Receive Date: 20130304
  Receipt Date: 20130304
  Transmission Date: 20140127
  Serious: No
  Sender: FDA-Public Use
  Company Number: US-ABBOTT-12P-163-0947593-00

PATIENT
  Sex: Male
  Weight: 108.96 kg

DRUGS (3)
  1. ANDROGEL 1% [Suspect]
     Indication: BLOOD TESTOSTERONE DECREASED
     Dates: start: 201202, end: 201204
  2. ANDROGEL 1% [Suspect]
     Dates: start: 201204, end: 201206
  3. ANDROGEL 1% [Suspect]
     Dosage: 1.62%, ONE IN ONE DAY
     Dates: start: 201206

REACTIONS (1)
  - Blood testosterone decreased [Not Recovered/Not Resolved]
